FAERS Safety Report 13068224 (Version 1)
Quarter: 2016Q4

REPORT INFORMATION
  Report Type: Spontaneous
  Country: US (occurrence: US)
  Receive Date: 20161228
  Receipt Date: 20161228
  Transmission Date: 20170207
  Serious: No
  Sender: FDA-Public Use
  Company Number: None

PATIENT
  Sex: Female

DRUGS (1)
  1. METINEX (METOLAZONE) [Suspect]
     Active Substance: METOLAZONE

REACTIONS (6)
  - Dehydration [None]
  - Acute myocardial infarction [None]
  - Hypokalaemia [None]
  - Drug dispensing error [None]
  - Incorrect dose administered [None]
  - Chest pain [None]

NARRATIVE: CASE EVENT DATE: 2016
